FAERS Safety Report 4572971-4 (Version None)
Quarter: 2005Q1

REPORT INFORMATION
  Report Type: 
  Country: None (occurrence: None)
  Receive Date: 20050203
  Receipt Date: 20050119
  Transmission Date: 20050727
  Serious: Yes (Other)
  Sender: FDA-Public Use
  Company Number: DEU-2004-0001150

PATIENT
  Age: 52 Year
  Sex: Male
  Weight: 93 kg

DRUGS (8)
  1. OXYCODONE HCL [Suspect]
     Indication: POST PROCEDURAL PAIN
     Dosage: 10 MG BID ORAL
     Route: 048
     Dates: start: 20040922, end: 20040928
  2. MARCUMAR [Suspect]
     Indication: POST PROCEDURAL PAIN
     Dosage: ORAL
     Route: 048
     Dates: start: 20040922, end: 20040928
  3. AMITRYPTILINE                     (AMITRYPTILINE) [Concomitant]
  4. GABAPENTIN [Concomitant]
  5. ISOSORBIDE MONONITRATE [Concomitant]
  6. PANTOPRAZOLE SODIUM [Concomitant]
  7. BELOC-ZOK FORTE             (METOPROLOL SUCCINATE) [Concomitant]
  8. ATORVASTATIN CALCIUM [Concomitant]

REACTIONS (3)
  - DRUG INTERACTION [None]
  - INTERNATIONAL NORMALISED RATIO DECREASED [None]
  - PROTHROMBIN TIME SHORTENED [None]
